FAERS Safety Report 9562432 (Version 3)
Quarter: 2013Q4

REPORT INFORMATION
  Report Type: Spontaneous
  Country: US (occurrence: US)
  Receive Date: 20130927
  Receipt Date: 20131010
  Transmission Date: 20140711
  Serious: Yes (Hospitalization)
  Sender: FDA-Public Use
  Company Number: US-GLAXOSMITHKLINE-A1042568A

PATIENT
  Age: 39 Year
  Sex: Male

DRUGS (3)
  1. LAMICTAL XR [Suspect]
     Indication: CONVULSION
     Dosage: 700MG PER DAY
     Route: 048
     Dates: start: 20130916, end: 20130918
  2. LAMICTAL [Suspect]
     Indication: CONVULSION
     Route: 065
     Dates: start: 20080702
  3. MUCINEX [Concomitant]

REACTIONS (2)
  - Grand mal convulsion [Unknown]
  - Vision blurred [Unknown]
